FAERS Safety Report 14665419 (Version 3)
Quarter: 2018Q4

REPORT INFORMATION
  Report Type: Spontaneous
  Country: CA (occurrence: CA)
  Receive Date: 20180321
  Receipt Date: 20181030
  Transmission Date: 20190204
  Serious: Yes (Hospitalization, Other)
  Sender: FDA-Public Use
  Company Number: CA-CELLTRION INC.-2016CA010971

PATIENT

DRUGS (9)
  1. INFLECTRA [Suspect]
     Active Substance: INFLIXIMAB-DYYB
     Dosage: 500 MG, CYCLIC (EVERY 2, 6 WEEKS, THEN EVERY 8 WEEKS FOR 11 MONTHS
     Route: 041
  2. INFLECTRA [Suspect]
     Active Substance: INFLIXIMAB-DYYB
     Dosage: 400MG, CYCLIC (EVERY 2,6 WEEKS THEN 6 WEEKS FOR 11 MONTHS)
     Route: 041
  3. METHOTREXATE. [Concomitant]
     Active Substance: METHOTREXATE
     Dosage: UNK
  4. INFLECTRA [Suspect]
     Active Substance: INFLIXIMAB-DYYB
     Dosage: 400MG, CYCLIC (EVERY 4 WEEKS)
     Route: 042
     Dates: start: 20180220
  5. NAPROXEN. [Concomitant]
     Active Substance: NAPROXEN
     Dosage: 500 MG, DAILY
     Route: 048
  6. TRAMACET [Concomitant]
     Active Substance: ACETAMINOPHEN\TRAMADOL
     Dosage: 37.5 MG/325MG, 3X/DAY
     Route: 048
  7. INFLECTRA [Suspect]
     Active Substance: INFLIXIMAB-DYYB
     Dosage: 500 MG, CYCLIC (EVERY 2, 6 WEEKS, THEN EVERY 8 WEEKS FOR 11 MONTHS
     Route: 041
     Dates: end: 20160822
  8. INFLECTRA [Suspect]
     Active Substance: INFLIXIMAB-DYYB
     Indication: ANKYLOSING SPONDYLITIS
     Dosage: 500 MG, CYCLIC (EVERY 2, 6 WEEKS, THEN EVERY 8 WEEKS FOR 11 MONTHS
     Route: 041
     Dates: start: 20160630
  9. INFLECTRA [Suspect]
     Active Substance: INFLIXIMAB-DYYB
     Dosage: 400MG, CYCLIC (EVERY 6 WEEKS)
     Route: 042
     Dates: start: 20160630, end: 20180109

REACTIONS (19)
  - Sarcoidosis [Not Recovered/Not Resolved]
  - Post-traumatic neck syndrome [Not Recovered/Not Resolved]
  - Soft tissue injury [Unknown]
  - Product use issue [Unknown]
  - Condition aggravated [Unknown]
  - Traumatic lung injury [Unknown]
  - Autoimmune disorder [Unknown]
  - Empyema [Recovered/Resolved]
  - Malaise [Not Recovered/Not Resolved]
  - Therapeutic response shortened [Unknown]
  - Ankylosing spondylitis [Unknown]
  - Drug effect incomplete [Not Recovered/Not Resolved]
  - Pneumothorax [Recovered/Resolved]
  - Pain [Not Recovered/Not Resolved]
  - Body temperature increased [Recovered/Resolved]
  - Lung neoplasm [Unknown]
  - Lower respiratory tract infection [Unknown]
  - Fatigue [Not Recovered/Not Resolved]
  - Incorrect product administration duration [Unknown]

NARRATIVE: CASE EVENT DATE: 20160630
